FAERS Safety Report 6863958-7 (Version None)
Quarter: 2010Q3

REPORT INFORMATION
  Report Type: 
  Country: None (occurrence: None)
  Receive Date: 20100721
  Receipt Date: 20080313
  Transmission Date: 20110219
  Serious: No
  Sender: FDA-Public Use
  Company Number: US-PFIZER INC-2008023370

PATIENT
  Sex: Female
  Weight: 65.909 kg

DRUGS (2)
  1. CHANTIX [Suspect]
     Indication: SMOKING CESSATION THERAPY
     Dates: start: 20080310
  2. AMBIEN [Concomitant]

REACTIONS (4)
  - DRY MOUTH [None]
  - FATIGUE [None]
  - INCORRECT DOSE ADMINISTERED [None]
  - TREMOR [None]
